FAERS Safety Report 23359298 (Version 1)
Quarter: 2024Q1

REPORT INFORMATION
  Report Type: Spontaneous
  Country: US (occurrence: US)
  Receive Date: 20240102
  Receipt Date: 20240102
  Transmission Date: 20240409
  Serious: No
  Sender: FDA-Public Use
  Company Number: US-009507513-2312USA006944

PATIENT
  Sex: Male

DRUGS (1)
  1. INVANZ [Suspect]
     Active Substance: ERTAPENEM SODIUM
     Indication: Endocarditis
     Dosage: 6 WEEKS
     Route: 042

REACTIONS (1)
  - Product use in unapproved indication [Unknown]
